FAERS Safety Report 5025886-1 (Version None)
Quarter: 2006Q2

REPORT INFORMATION
  Report Type: 
  Country: None (occurrence: None)
  Receive Date: 20060608
  Receipt Date: 20060601
  Transmission Date: 20061013
  Serious: Yes (Hospitalization)
  Sender: FDA-Public Use
  Company Number: 430063K06USA

PATIENT
  Age: 56 Year
  Sex: Female

DRUGS (2)
  1. NOVANTRONE [Suspect]
     Indication: MULTIPLE SCLEROSIS
  2. COPAXONE [Suspect]
     Indication: MULTIPLE SCLEROSIS
     Dosage: 1 IN 2 DAYS
     Dates: start: 20060217, end: 20060316

REACTIONS (3)
  - CARDIAC DISORDER [None]
  - HEART RATE INCREASED [None]
  - OEDEMA PERIPHERAL [None]
